FAERS Safety Report 7587439-0 (Version None)
Quarter: 2011Q3

REPORT INFORMATION
  Report Type: 
  Country: None (occurrence: None)
  Receive Date: 20110704
  Receipt Date: 20110622
  Transmission Date: 20111222
  Serious: Yes (Other)
  Sender: FDA-Public Use
  Company Number: FR-BIOGENIDEC-2011BI023757

PATIENT
  Sex: Male

DRUGS (7)
  1. AMYTRIPTYLINE [Concomitant]
  2. CLONAZEPAM [Concomitant]
  3. MUSCLE RELAXANTS [Concomitant]
  4. TYSABRI [Suspect]
     Indication: MULTIPLE SCLEROSIS
     Route: 042
     Dates: start: 20070809
  5. TEMAZEPAM [Concomitant]
  6. ANTIHYPERTENSIVES [Concomitant]
  7. BACLOFEN [Concomitant]

REACTIONS (1)
  - COGNITIVE DISORDER [None]
